FAERS Safety Report 9157888 (Version 1)
Quarter: 2013Q1

REPORT INFORMATION
  Report Type: Spontaneous
  Country: AU (occurrence: None)
  Receive Date: 20130212
  Receipt Date: 20130212
  Transmission Date: 20140127
  Serious: Yes (Congenital Anomaly)
  Sender: FDA-Public Use
  Company Number: B0865836A

PATIENT
  Sex: 0

DRUGS (2)
  1. LAMOTRIGINE (FORMULATION UNKNOWN) (GENERIC) (LAMOTRIGINE) [Suspect]
     Indication: EPILEPSY
     Route: 064
  2. CARBAMAZEPINE [Suspect]
     Route: 064

REACTIONS (2)
  - Atrial septal defect [None]
  - Maternal drugs affecting foetus [None]
